FAERS Safety Report 18594708 (Version 1)
Quarter: 2020Q4

REPORT INFORMATION
  Report Type: Spontaneous
  Country: US (occurrence: US)
  Receive Date: 20201208
  Receipt Date: 20201208
  Transmission Date: 20210114
  Serious: Yes (Death)
  Sender: FDA-Public Use
  Company Number: None

PATIENT
  Age: 77 Year
  Sex: Male

DRUGS (9)
  1. MORPHINE SUL [Concomitant]
     Active Substance: MORPHINE SULFATE
  2. ATROVASTATIN [Concomitant]
     Active Substance: ATORVASTATIN CALCIUM
  3. NEUPRO [Concomitant]
     Active Substance: ROTIGOTINE
  4. NOVOLIN NOS [Concomitant]
     Active Substance: INSULIN HUMAN
  5. SINEMET [Concomitant]
     Active Substance: CARBIDOPA\LEVODOPA
  6. FLUOXETINE [Concomitant]
     Active Substance: FLUOXETINE HYDROCHLORIDE
  7. METFORMIN [Concomitant]
     Active Substance: METFORMIN HYDROCHLORIDE
  8. LOSARTAN POT [Concomitant]
     Active Substance: LOSARTAN POTASSIUM
  9. BOTOX [Suspect]
     Active Substance: ONABOTULINUMTOXINA
     Indication: SALIVA ALTERED
     Dosage: ?          OTHER STRENGTH:100 UNIT ;OTHER DOSE:200 UNITS;OTHER FREQUENCY:EVERY 90 DAYS ;?
     Dates: start: 20200520, end: 20201111

REACTIONS (1)
  - Death [None]

NARRATIVE: CASE EVENT DATE: 202011
